FAERS Safety Report 6538211-1 (Version None)
Quarter: 2010Q1

REPORT INFORMATION
  Report Type: 
  Country: None (occurrence: None)
  Receive Date: 20100110
  Receipt Date: 20091214
  Transmission Date: 20100710
  Serious: Yes (Other)
  Sender: FDA-Public Use
  Company Number: DK-1171422

PATIENT
  Sex: Female

DRUGS (3)
  1. TOBRADEX [Suspect]
     Dosage: OPTHALMIC
     Route: 047
     Dates: start: 20070301
  2. XALATAN [Concomitant]
  3. ALPHAGAN [Concomitant]

REACTIONS (9)
  - CHROMATOPSIA [None]
  - EYE PAIN [None]
  - FATIGUE [None]
  - KERATITIS HERPETIC [None]
  - MALAISE [None]
  - POST PROCEDURAL COMPLICATION [None]
  - PYREXIA [None]
  - VISION BLURRED [None]
  - VISUAL IMPAIRMENT [None]
